FAERS Safety Report 7876925-1 (Version None)
Quarter: 2011Q4

REPORT INFORMATION
  Report Type: 
  Country: None (occurrence: None)
  Receive Date: 20111031
  Receipt Date: 20111026
  Transmission Date: 20120403
  Serious: Yes (Hospitalization)
  Sender: FDA-Public Use
  Company Number: US-SANOFI-AVENTIS-2011SA070450

PATIENT
  Age: 55 Year
  Sex: Male

DRUGS (2)
  1. LANTUS [Suspect]
     Dosage: DOSE:95 UNIT(S)
     Route: 058
     Dates: start: 20100101
  2. HYDROCODONE BITARTRATE [Concomitant]

REACTIONS (2)
  - HOSPITALISATION [None]
  - WEIGHT INCREASED [None]
